FAERS Safety Report 7576879-1 (Version None)
Quarter: 2011Q2

REPORT INFORMATION
  Report Type: 
  Country: None (occurrence: None)
  Receive Date: 20110628
  Receipt Date: 20110623
  Transmission Date: 20111010
  Serious: Yes (Death, Hospitalization)
  Sender: FDA-Public Use
  Company Number: US-JNJFOC-20110608983

PATIENT
  Age: 45 Year
  Sex: Male

DRUGS (4)
  1. STELARA [Suspect]
     Indication: PSORIASIS
     Route: 058
     Dates: start: 20110520
  2. METHOTREXATE [Concomitant]
  3. HUMIRA [Concomitant]
  4. STELARA [Suspect]
     Route: 058
     Dates: start: 20110517

REACTIONS (5)
  - INAPPROPRIATE SCHEDULE OF DRUG ADMINISTRATION [None]
  - CELLULITIS [None]
  - PANCYTOPENIA [None]
  - CARDIO-RESPIRATORY ARREST [None]
  - RASH [None]
